FAERS Safety Report 17372119 (Version 1)
Quarter: 2020Q1

REPORT INFORMATION
  Report Type: Spontaneous
  Country: JP (occurrence: JP)
  Receive Date: 20200205
  Receipt Date: 20200205
  Transmission Date: 20200409
  Serious: Yes (Other)
  Sender: FDA-Public Use
  Company Number: JP-NVP-000001

PATIENT
  Age: 63 Year

DRUGS (3)
  1. DAPSONE. [Suspect]
     Active Substance: DAPSONE
     Indication: GRANULOMA SKIN
     Route: 065
  2. DAPSONE. [Suspect]
     Active Substance: DAPSONE
     Indication: GRANULOMA SKIN
     Route: 065
  3. DAPSONE. [Suspect]
     Active Substance: DAPSONE
     Indication: GRANULOMA SKIN
     Route: 065

REACTIONS (2)
  - Drug effective for unapproved indication [Unknown]
  - Liver injury [Recovered/Resolved]
